FAERS Safety Report 5375832-6 (Version None)
Quarter: 2007Q3

REPORT INFORMATION
  Report Type: 
  Country: None (occurrence: None)
  Receive Date: 20070702
  Receipt Date: 20070625
  Transmission Date: 20080115
  Serious: Yes (Death, Hospitalization)
  Sender: FDA-Public Use
  Company Number: PHHO2007BR10728

PATIENT
  Age: 65 Year
  Sex: Female

DRUGS (1)
  1. ZELMAC / HTF 919A [Suspect]
     Route: 048

REACTIONS (3)
  - DEATH [None]
  - DIABETES MELLITUS [None]
  - HEPATITIS [None]
